FAERS Safety Report 11116076 (Version 1)
Quarter: 2015Q2

REPORT INFORMATION
  Report Type: Spontaneous
  Country: US (occurrence: None)
  Receive Date: 20150514
  Receipt Date: 20150514
  Transmission Date: 20150821
  Serious: Yes (Hospitalization)
  Sender: FDA-Public Use
  Company Number: None

PATIENT
  Age: 66 Year
  Sex: Female
  Weight: 64.8 kg

DRUGS (1)
  1. NOLVADEX [Suspect]
     Active Substance: TAMOXIFEN CITRATE
     Dosage: PER PATIENT REPORTED
     Dates: end: 20150330

REACTIONS (3)
  - Asthenia [None]
  - Hyponatraemia [None]
  - Lethargy [None]

NARRATIVE: CASE EVENT DATE: 20150331
